APPROVED DRUG PRODUCT: HYDROCODONE BITARTRATE AND ACETAMINOPHEN
Active Ingredient: ACETAMINOPHEN; HYDROCODONE BITARTRATE
Strength: 325MG/15ML;7.5MG/15ML
Dosage Form/Route: SOLUTION;ORAL
Application: A040894 | Product #001 | TE Code: AA
Applicant: GENUS LIFESCIENCES INC
Approved: Jul 19, 2011 | RLD: No | RS: No | Type: RX